FAERS Safety Report 7543530-6 (Version None)
Quarter: 2011Q2

REPORT INFORMATION
  Report Type: 
  Country: None (occurrence: None)
  Receive Date: 20110613
  Receipt Date: 20010913
  Transmission Date: 20111010
  Serious: Yes (Hospitalization)
  Sender: FDA-Public Use
  Company Number: PHEH2001US07641

PATIENT

DRUGS (4)
  1. ZYPREXA [Concomitant]
  2. ZESTRIL [Concomitant]
  3. EXELON [Suspect]
     Indication: DEMENTIA ALZHEIMER'S TYPE
     Dosage: 3 MG, BID
     Route: 048
     Dates: start: 20010728
  4. GLYBURIDE [Concomitant]

REACTIONS (3)
  - FALL [None]
  - ARRHYTHMIA [None]
  - DEHYDRATION [None]
